FAERS Safety Report 12300996 (Version 2)
Quarter: 2016Q2

REPORT INFORMATION
  Report Type: Report from Study
  Country: CO (occurrence: CO)
  Receive Date: 20160425
  Receipt Date: 20160513
  Transmission Date: 20160815
  Serious: Yes (Hospitalization, Other)
  Sender: FDA-Public Use
  Company Number: CO-ELI_LILLY_AND_COMPANY-CO201604003474

PATIENT
  Age: 84 Year
  Sex: Female

DRUGS (4)
  1. VITAMIN D [Concomitant]
     Active Substance: CHOLECALCIFEROL
     Dosage: UNK
  2. FORTEO [Suspect]
     Active Substance: TERIPARATIDE
     Indication: OSTEOPOROSIS
     Dosage: 20 UG, UNKNOWN
     Route: 058
     Dates: start: 201406, end: 20160324
  3. CALCIUM [Concomitant]
     Active Substance: CALCIUM
     Dosage: UNK
  4. LEVOTHYROXINE. [Concomitant]
     Active Substance: LEVOTHYROXINE
     Dosage: UNK

REACTIONS (9)
  - Chronic obstructive pulmonary disease [Recovered/Resolved]
  - Hypotension [Recovering/Resolving]
  - Pallor [Recovering/Resolving]
  - Hypotension [Recovering/Resolving]
  - Pain in extremity [Recovering/Resolving]
  - Inappropriate schedule of drug administration [Unknown]
  - Depressed mood [Recovering/Resolving]
  - Oxygen saturation decreased [Recovering/Resolving]
  - Bronchial disorder [Recovered/Resolved]

NARRATIVE: CASE EVENT DATE: 201603
